FAERS Safety Report 8814187 (Version 2)
Quarter: 2012Q4

REPORT INFORMATION
  Report Type: 
  Country: DE (occurrence: DE)
  Receive Date: 20120928
  Receipt Date: 20121123
  Transmission Date: 20130627
  Serious: Yes (Other)
  Sender: FDA-Public Use
  Company Number: DE-JNJFOC-20120909362

PATIENT
  Age: 34 Year
  Sex: Male

DRUGS (2)
  1. REMICADE [Suspect]
     Indication: CROHN^S DISEASE
     Route: 042
     Dates: start: 20080225, end: 20120925
  2. BUDENOFALK [Concomitant]
     Route: 065
     Dates: start: 200904

REACTIONS (2)
  - Pyoderma [Unknown]
  - Acne [Recovered/Resolved]
